FAERS Safety Report 16794567 (Version 1)
Quarter: 2019Q3

REPORT INFORMATION
  Report Type: Spontaneous
  Country: HU (occurrence: HU)
  Receive Date: 20190911
  Receipt Date: 20190911
  Transmission Date: 20191005
  Serious: Yes (Disabling)
  Sender: FDA-Public Use
  Company Number: HU-ASTRAZENECA-2019SF25833

PATIENT
  Age: 37 Year
  Sex: Male

DRUGS (1)
  1. LUDEA [Suspect]
     Active Substance: OMEPRAZOLE
     Indication: PRODUCT USED FOR UNKNOWN INDICATION
     Route: 048
     Dates: start: 2018, end: 2019

REACTIONS (3)
  - Blister [Unknown]
  - Aggression [Unknown]
  - Cough [Unknown]
